FAERS Safety Report 7443557-9 (Version None)
Quarter: 2011Q2

REPORT INFORMATION
  Report Type: 
  Country: None (occurrence: None)
  Receive Date: 20110428
  Receipt Date: 20110419
  Transmission Date: 20111010
  Serious: Yes (Other)
  Sender: FDA-Public Use
  Company Number: US-ASTRAZENECA-2011SE22922

PATIENT
  Age: 57 Year
  Sex: Female
  Weight: 110.7 kg

DRUGS (3)
  1. CRESTOR [Suspect]
     Route: 048
  2. CRESTOR [Suspect]
     Indication: HYPERCHOLESTEROLAEMIA
     Route: 048
     Dates: start: 20081101
  3. CRESTOR [Suspect]
     Dosage: MEDCO, 20 MG DAILY
     Route: 048

REACTIONS (10)
  - ACCIDENT AT WORK [None]
  - SPINAL DEFORMITY [None]
  - BLOOD TRIGLYCERIDES INCREASED [None]
  - BLOOD CHOLESTEROL INCREASED [None]
  - FAECAL INCONTINENCE [None]
  - DRUG INEFFECTIVE [None]
  - WEIGHT DECREASED [None]
  - HYPOAESTHESIA [None]
  - URINARY INCONTINENCE [None]
  - WEIGHT INCREASED [None]
